FAERS Safety Report 5402329-7 (Version None)
Quarter: 2007Q3

REPORT INFORMATION
  Report Type: 
  Country: None (occurrence: None)
  Receive Date: 20070801
  Receipt Date: 20070723
  Transmission Date: 20080115
  Serious: Yes (Other)
  Sender: FDA-Public Use
  Company Number: IE-AVENTIS-200716003GDDC

PATIENT
  Age: 54 Year
  Sex: Female

DRUGS (1)
  1. FLAGYL [Suspect]
     Route: 048
     Dates: start: 20070618, end: 20070618

REACTIONS (4)
  - HEADACHE [None]
  - HYPOTONIC-HYPORESPONSIVE EPISODE [None]
  - NAUSEA [None]
  - SYNCOPE [None]
